FAERS Safety Report 11761002 (Version 2)
Quarter: 2015Q4

REPORT INFORMATION
  Report Type: Report from Study
  Country: US (occurrence: US)
  Receive Date: 20151120
  Receipt Date: 20151201
  Transmission Date: 20160304
  Serious: Yes (Hospitalization)
  Sender: FDA-Public Use
  Company Number: US-PFIZER INC-2015376731

PATIENT
  Sex: Male

DRUGS (8)
  1. CLONIDINE. [Suspect]
     Active Substance: CLONIDINE
     Indication: DRUG WITHDRAWAL SYNDROME NEONATAL
     Dosage: UNK
     Dates: start: 20151102, end: 20151115
  2. COLACE [Concomitant]
     Active Substance: DOCUSATE SODIUM
     Indication: CONSTIPATION
     Dosage: UNK
     Route: 064
     Dates: start: 20150903
  3. SUBUTEX [Suspect]
     Active Substance: BUPRENORPHINE HYDROCHLORIDE
     Indication: DRUG DEPENDENCE
     Dosage: 8 MG, 3 TIMES DAILY
     Route: 064
     Dates: start: 20150415
  4. BLINDED NICOTINE [Suspect]
     Active Substance: NICOTINE
     Indication: SMOKING CESSATION THERAPY
     Dosage: BLINDED THERAPY, 4-12 CARTRIDGES DAILY
     Route: 064
     Dates: start: 20150716, end: 20150901
  5. BLINDED PLACEBO [Suspect]
     Active Substance: INVESTIGATIONAL PRODUCT
     Indication: SMOKING CESSATION THERAPY
     Dosage: BLINDED THERAPY, 4-12 CARTRIDGES DAILY
     Route: 064
     Dates: start: 20150716, end: 20150901
  6. BLINDED PLACEBO [Suspect]
     Active Substance: INVESTIGATIONAL PRODUCT
     Indication: SMOKING CESSATION THERAPY
     Dosage: BLINDED THERAPY, 4-12 CARTRIDGES DAILY
     Route: 064
     Dates: start: 20150716, end: 20150901
  7. MORPHINE SULFATE. [Suspect]
     Active Substance: MORPHINE SULFATE
     Indication: DRUG WITHDRAWAL SYNDROME NEONATAL
     Dosage: UNK
     Dates: start: 20151102, end: 20151111
  8. BLINDED NICOTINE [Suspect]
     Active Substance: NICOTINE
     Indication: SMOKING CESSATION THERAPY
     Dosage: BLINDED THERAPY, 4-12 CARTRIDGES DAILY
     Route: 064
     Dates: start: 20150716, end: 20150901

REACTIONS (3)
  - Bradycardia neonatal [Recovered/Resolved]
  - Drug withdrawal syndrome neonatal [Recovered/Resolved]
  - Maternal exposure during pregnancy [Recovering/Resolving]

NARRATIVE: CASE EVENT DATE: 20151102
